FAERS Safety Report 8402700-5 (Version None)
Quarter: 2012Q2

REPORT INFORMATION
  Report Type: 
  Country: None (occurrence: None)
  Receive Date: 20120601
  Receipt Date: 20110729
  Transmission Date: 20120825
  Serious: No
  Sender: FDA-Public Use
  Company Number: US-NOVEN-11US002894

PATIENT
  Age: 41 Year
  Sex: Male
  Weight: 90.703 kg

DRUGS (2)
  1. DAYTRANA [Suspect]
     Indication: PRODUCT USED FOR UNKNOWN INDICATION
     Dosage: 30 MG, QD
     Route: 062
  2. DAYTRANA [Suspect]
     Dosage: 30 MG, QD
     Route: 062

REACTIONS (5)
  - OFF LABEL USE [None]
  - DRUG ADMINISTRATION ERROR [None]
  - PRODUCT QUALITY ISSUE [None]
  - DRUG DOSE OMISSION [None]
  - NO ADVERSE EVENT [None]
